FAERS Safety Report 4546696-5 (Version None)
Quarter: 2005Q1

REPORT INFORMATION
  Report Type: 
  Country: None (occurrence: None)
  Receive Date: 20050105
  Receipt Date: 20041220
  Transmission Date: 20050727
  Serious: Yes (Hospitalization)
  Sender: FDA-Public Use
  Company Number: S04-UKI-07616-01

PATIENT
  Age: 46 Year
  Sex: Male

DRUGS (5)
  1. CIPRAMIL (CITALOPRAM) [Suspect]
     Indication: DEPRESSION
     Dosage: 20 MG QD PO
     Route: 048
     Dates: start: 20041003, end: 20041109
  2. OLANZAPINE [Suspect]
     Indication: MAJOR DEPRESSION
     Dosage: 10 MG QD PO
     Route: 048
     Dates: start: 20040914, end: 20041109
  3. MIRTAZAPINE [Suspect]
     Indication: DEPRESSION
     Dosage: 45 MG QD PO
     Route: 048
     Dates: start: 20040914
  4. SULPIRIDE [Suspect]
     Indication: MAJOR DEPRESSION
     Dosage: 400 MG QD PO
     Route: 048
     Dates: start: 20041014, end: 20041022
  5. ZOPICLONE [Suspect]
     Indication: INSOMNIA
     Dosage: 7.5 MG QD PO
     Route: 048
     Dates: start: 20040914

REACTIONS (8)
  - BLOOD CREATINE PHOSPHOKINASE INCREASED [None]
  - BODY TEMPERATURE INCREASED [None]
  - EXTRAPYRAMIDAL DISORDER [None]
  - HYPERHIDROSIS [None]
  - LABILE BLOOD PRESSURE [None]
  - NEUROLEPTIC MALIGNANT SYNDROME [None]
  - PARKINSON'S DISEASE [None]
  - WEIGHT DECREASED [None]
